FAERS Safety Report 5050228-5 (Version None)
Quarter: 2006Q2

REPORT INFORMATION
  Report Type: 
  Country: None (occurrence: None)
  Receive Date: 20060614
  Receipt Date: 20060410
  Transmission Date: 20061013
  Serious: Yes (Other)
  Sender: FDA-Public Use
  Company Number: 444241

PATIENT
  Age: 45 Year
  Sex: Female

DRUGS (5)
  1. BONIVA [Suspect]
     Indication: OSTEOPOROSIS
     Dosage: 150 MG 1 PER MONTH ORAL
     Route: 048
     Dates: start: 20060301
  2. NEXIUM [Concomitant]
  3. PREMPRO [Concomitant]
  4. CLARITIN [Concomitant]
  5. MULTIVITAMIN NOS [Concomitant]

REACTIONS (1)
  - BONE PAIN [None]
